FAERS Safety Report 5503091-X (Version None)
Quarter: 2007Q4

REPORT INFORMATION
  Report Type: 
  Country: None (occurrence: None)
  Receive Date: 20071031
  Receipt Date: 20071026
  Transmission Date: 20080405
  Serious: Yes (Other)
  Sender: FDA-Public Use
  Company Number: US-ALLERGAN-0711840US

PATIENT
  Sex: Male
  Weight: 102.04 kg

DRUGS (5)
  1. AZELAIC ACID 15% GEL - SCHERING [Suspect]
     Indication: ROSACEA
     Dates: start: 20070920, end: 20071010
  2. SUCRALFATE [Concomitant]
  3. METOCLOPRAMIDE [Concomitant]
  4. PROTONIX [Concomitant]
  5. TESTOSTERONE CIPIONATE [Concomitant]

REACTIONS (3)
  - DRUG ADMINISTERED AT INAPPROPRIATE SITE [None]
  - RETINAL VEIN OCCLUSION [None]
  - VISION BLURRED [None]
